FAERS Safety Report 23498583 (Version 1)
Quarter: 2024Q1

REPORT INFORMATION
  Report Type: Spontaneous
  Country: US (occurrence: None)
  Receive Date: 20240207
  Receipt Date: 20240207
  Transmission Date: 20240409
  Serious: No
  Sender: FDA-Public Use
  Company Number: None

PATIENT
  Age: 43 Year
  Sex: Male
  Weight: 72 kg

DRUGS (5)
  1. XOFLUZA [Suspect]
     Active Substance: BALOXAVIR MARBOXIL
     Indication: Influenza
     Dosage: FREQUENCY : ONCE;?
     Route: 048
     Dates: start: 20240202, end: 20240202
  2. ESTRADIOL [Concomitant]
     Active Substance: ESTRADIOL
  3. SPIRONOLACTONE [Concomitant]
     Active Substance: SPIRONOLACTONE
  4. UBRELVY [Concomitant]
     Active Substance: UBROGEPANT
  5. VITAMINS [Concomitant]
     Active Substance: VITAMINS

REACTIONS (2)
  - Renal disorder [None]
  - Pollakiuria [None]

NARRATIVE: CASE EVENT DATE: 20240203
